FAERS Safety Report 25114242 (Version 1)
Quarter: 2025Q1

REPORT INFORMATION
  Report Type: Spontaneous
  Country: US (occurrence: US)
  Receive Date: 20250324
  Receipt Date: 20250324
  Transmission Date: 20250408
  Serious: No
  Sender: SANOFI AVENTIS
  Company Number: US-SA-2025SA084296

PATIENT
  Age: 55 Year
  Sex: Female

DRUGS (5)
  1. DUPIXENT [Suspect]
     Active Substance: DUPILUMAB
     Dosage: 300 MG, QOW
     Route: 058
     Dates: start: 20241121
  2. CLOBETASOL [Concomitant]
     Active Substance: CLOBETASOL
  3. DESONIDE [Concomitant]
     Active Substance: DESONIDE
  4. LORATADINE [Concomitant]
     Active Substance: LORATADINE
  5. PREDNISONE [Concomitant]
     Active Substance: PREDNISONE

REACTIONS (2)
  - Product dose omission in error [Unknown]
  - Drug ineffective [Unknown]
